FAERS Safety Report 7153788-3 (Version None)
Quarter: 2010Q4

REPORT INFORMATION
  Report Type: 
  Country: None (occurrence: None)
  Receive Date: 20101213
  Receipt Date: 20100622
  Transmission Date: 20110411
  Serious: No
  Sender: FDA-Public Use
  Company Number: US-ABBOTT-10P-163-0652656-00

PATIENT
  Sex: Female
  Weight: 103.51 kg

DRUGS (1)
  1. MERIDIA [Suspect]
     Indication: DECREASED APPETITE
     Dates: start: 20100614, end: 20100616

REACTIONS (4)
  - HEADACHE [None]
  - SOMNOLENCE [None]
  - SWELLING FACE [None]
  - WEIGHT LOSS POOR [None]
